FAERS Safety Report 10343468 (Version 1)
Quarter: 2014Q3

REPORT INFORMATION
  Report Type: Spontaneous
  Country: GB (occurrence: None)
  Receive Date: 20140723
  Receipt Date: 20140723
  Transmission Date: 20150326
  Serious: Yes (Disabling, Other)
  Sender: FDA-Public Use
  Company Number: AUR-APL-2014-07811

PATIENT
  Age: 74 Year
  Sex: Female
  Weight: 76.2 kg

DRUGS (6)
  1. WARFARIN [Concomitant]
     Active Substance: WARFARIN
  2. BISOPROLOL [Concomitant]
     Active Substance: BISOPROLOL
  3. SIMVASTATIN (SIMVASTATIN) UNKNOWN, UNKNOWN [Suspect]
     Active Substance: SIMVASTATIN
     Indication: CEREBROVASCULAR ACCIDENT
     Route: 048
     Dates: start: 20110901, end: 20140509
  4. ATENOLOL. [Concomitant]
     Active Substance: ATENOLOL
  5. BENDROFLUMETHIAZIDE [Concomitant]
     Active Substance: BENDROFLUMETHIAZIDE
  6. CANDESARTAN [Concomitant]
     Active Substance: CANDESARTAN

REACTIONS (3)
  - Asthenia [None]
  - Fatigue [None]
  - Myalgia [None]
